FAERS Safety Report 25202533 (Version 1)
Quarter: 2025Q2

REPORT INFORMATION
  Report Type: Spontaneous
  Country: US (occurrence: US)
  Receive Date: 20250416
  Receipt Date: 20250416
  Transmission Date: 20250717
  Serious: Yes (Life-Threatening, Hospitalization)
  Sender: MYLAN
  Company Number: US-MYLANLABS-2025M1032361

PATIENT
  Age: 12 Year
  Sex: Female

DRUGS (16)
  1. HEPARIN [Suspect]
     Active Substance: HEPARIN SODIUM
     Indication: Anticoagulant therapy
  2. HEPARIN [Suspect]
     Active Substance: HEPARIN SODIUM
     Route: 065
  3. HEPARIN [Suspect]
     Active Substance: HEPARIN SODIUM
     Route: 065
  4. HEPARIN [Suspect]
     Active Substance: HEPARIN SODIUM
  5. HEPARIN SODIUM [Suspect]
     Active Substance: HEPARIN SODIUM
     Indication: Anticoagulant therapy
  6. HEPARIN SODIUM [Suspect]
     Active Substance: HEPARIN SODIUM
     Route: 065
  7. HEPARIN SODIUM [Suspect]
     Active Substance: HEPARIN SODIUM
     Route: 065
  8. HEPARIN SODIUM [Suspect]
     Active Substance: HEPARIN SODIUM
  9. EPOPROSTENOL [Suspect]
     Active Substance: EPOPROSTENOL
     Indication: Anticoagulant therapy
  10. EPOPROSTENOL [Suspect]
     Active Substance: EPOPROSTENOL
     Route: 065
  11. EPOPROSTENOL [Suspect]
     Active Substance: EPOPROSTENOL
     Route: 065
  12. EPOPROSTENOL [Suspect]
     Active Substance: EPOPROSTENOL
  13. TRANEXAMIC ACID [Suspect]
     Active Substance: TRANEXAMIC ACID
     Indication: Pulmonary haemorrhage
  14. TRANEXAMIC ACID [Suspect]
     Active Substance: TRANEXAMIC ACID
     Route: 055
  15. TRANEXAMIC ACID [Suspect]
     Active Substance: TRANEXAMIC ACID
     Route: 055
  16. TRANEXAMIC ACID [Suspect]
     Active Substance: TRANEXAMIC ACID

REACTIONS (3)
  - Pulmonary haemorrhage [Unknown]
  - Drug ineffective [Unknown]
  - Off label use [Unknown]
